FAERS Safety Report 23309884 (Version 2)
Quarter: 2023Q4

REPORT INFORMATION
  Report Type: Report from Study
  Country: US (occurrence: US)
  Receive Date: 20231218
  Receipt Date: 20231226
  Transmission Date: 20240110
  Serious: Yes (Hospitalization)
  Sender: FDA-Public Use
  Company Number: US-BoehringerIngelheim-2023-BI-220430

PATIENT
  Age: 60 Year
  Sex: Male
  Weight: 78 kg

DRUGS (1)
  1. OFEV [Suspect]
     Active Substance: NINTEDANIB
     Indication: Idiopathic pulmonary fibrosis
     Dosage: WITH FOOD
     Route: 048
     Dates: start: 20230203

REACTIONS (6)
  - Gastrointestinal disorder [Unknown]
  - Diarrhoea [Unknown]
  - Abdominal discomfort [Not Recovered/Not Resolved]
  - Abdominal pain upper [Recovered/Resolved]
  - Dyspepsia [Not Recovered/Not Resolved]
  - Abdominal pain [Unknown]

NARRATIVE: CASE EVENT DATE: 20231201
